FAERS Safety Report 21904077 (Version 1)
Quarter: 2023Q1

REPORT INFORMATION
  Report Type: Spontaneous
  Country: US (occurrence: None)
  Receive Date: 20230123
  Receipt Date: 20230123
  Transmission Date: 20230417
  Serious: Yes (Hospitalization)
  Sender: FDA-Public Use
  Company Number: None

PATIENT
  Sex: Female

DRUGS (7)
  1. GLATIRAMER [Suspect]
     Active Substance: GLATIRAMER
  2. CARBAMAZEPINE [Concomitant]
     Active Substance: CARBAMAZEPINE
  3. GABAPENTIN [Concomitant]
     Active Substance: GABAPENTIN
  4. LASIX TAB [Concomitant]
  5. PANTOPRAZOLE TAB [Concomitant]
  6. VITAMIN D2 [Concomitant]
     Active Substance: ERGOCALCIFEROL
  7. VITAMIN D3 CAP [Concomitant]

REACTIONS (4)
  - Mobility decreased [None]
  - Fall [None]
  - Surgery [None]
  - Therapy interrupted [None]
